FAERS Safety Report 9023199 (Version 1)
Quarter: 2013Q1

REPORT INFORMATION
  Report Type: Spontaneous
  Country: US (occurrence: US)
  Receive Date: 20130120
  Receipt Date: 20130120
  Transmission Date: 20140127
  Serious: No
  Sender: FDA-Public Use
  Company Number: US-ALLERGAN-1214422US

PATIENT
  Age: 76 Year
  Sex: Female

DRUGS (1)
  1. BOTOX COSMETIC [Suspect]
     Indication: SKIN WRINKLING
     Dosage: 8 UNITS, SINGLE
     Route: 030
     Dates: start: 20121012, end: 20121012

REACTIONS (7)
  - Lacrimation increased [Recovering/Resolving]
  - Rhinorrhoea [Recovering/Resolving]
  - Abnormal sensation in eye [Recovering/Resolving]
  - Eyelid sensory disorder [Recovering/Resolving]
  - Injection site photosensitivity reaction [Recovering/Resolving]
  - Photophobia [Recovering/Resolving]
  - Iritis [Recovering/Resolving]
